FAERS Safety Report 8214156-6 (Version None)
Quarter: 2012Q1

REPORT INFORMATION
  Report Type: 
  Country: None (occurrence: None)
  Receive Date: 20120315
  Receipt Date: 20120315
  Transmission Date: 20120608
  Serious: Yes (Other)
  Sender: FDA-Public Use
  Company Number: None

PATIENT
  Sex: Female
  Weight: 78.0187 kg

DRUGS (1)
  1. ACTIVELLA [Suspect]
     Indication: MENOPAUSE
     Dosage: 1.0/0.5MG 1 PER DAY
     Dates: start: 20070514

REACTIONS (5)
  - VAGINAL HAEMORRHAGE [None]
  - PRODUCT SUBSTITUTION ISSUE [None]
  - HOT FLUSH [None]
  - NIGHT SWEATS [None]
  - HYPERTRICHOSIS [None]
